FAERS Safety Report 9418819 (Version 1)
Quarter: 2013Q3

REPORT INFORMATION
  Report Type: Spontaneous
  Country: US (occurrence: US)
  Receive Date: 20130725
  Receipt Date: 20130725
  Transmission Date: 20140515
  Serious: No
  Sender: FDA-Public Use
  Company Number: US-PFIZER INC-2013217087

PATIENT
  Sex: Male

DRUGS (1)
  1. GEODON [Suspect]
     Indication: MANIA
     Dosage: 60 MG DAILY
     Dates: start: 201307

REACTIONS (6)
  - Somnambulism [Unknown]
  - Disturbance in attention [Unknown]
  - Restlessness [Unknown]
  - Enuresis [Unknown]
  - Tremor [Unknown]
  - Drug ineffective [Unknown]
